FAERS Safety Report 22172420 (Version 1)
Quarter: 2023Q2

REPORT INFORMATION
  Report Type: Spontaneous
  Country: US (occurrence: US)
  Receive Date: 20230404
  Receipt Date: 20230404
  Transmission Date: 20230722
  Serious: Yes (Hospitalization, Other)
  Sender: FDA-Public Use
  Company Number: US-PFIZER INC-202300139627

PATIENT
  Age: 77 Year
  Sex: Male
  Weight: 81.65 kg

DRUGS (2)
  1. VYNDAMAX [Suspect]
     Active Substance: TAFAMIDIS
     Indication: Amyloidosis
     Dosage: 61 MG, 1X/DAY (TABLET ONCE DAILY BY MOUTH)
     Route: 048
     Dates: start: 20211001
  2. OMEPRAZOLE [Concomitant]
     Active Substance: OMEPRAZOLE
     Indication: Abdominal discomfort
     Dosage: 40 MG, 1X/DAY

REACTIONS (8)
  - Gastrointestinal haemorrhage [Recovered/Resolved]
  - Blood loss anaemia [Unknown]
  - Arterial haemorrhage [Unknown]
  - Arteriovenous malformation [Unknown]
  - Cardiac disorder [Unknown]
  - Urinary tract infection [Recovering/Resolving]
  - Haemoglobin decreased [Unknown]
  - Pyrexia [Unknown]

NARRATIVE: CASE EVENT DATE: 20211201
